FAERS Safety Report 20803305 (Version 2)
Quarter: 2022Q2

REPORT INFORMATION
  Report Type: Spontaneous
  Country: KW (occurrence: KW)
  Receive Date: 20220509
  Receipt Date: 20220520
  Transmission Date: 20220721
  Serious: Yes (Other)
  Sender: FDA-Public Use
  Company Number: KW-NOVARTISPH-NVSC2022KW092253

PATIENT
  Age: 98 Year
  Sex: Female

DRUGS (3)
  1. BEOVU [Suspect]
     Active Substance: BROLUCIZUMAB-DBLL
     Indication: Age-related macular degeneration
     Dosage: 6 MG
     Route: 031
     Dates: start: 20211230
  2. BEOVU [Suspect]
     Active Substance: BROLUCIZUMAB-DBLL
     Dosage: 6 MG
     Route: 031
     Dates: start: 20220410
  3. METHOTREXATE [Suspect]
     Active Substance: METHOTREXATE
     Indication: Osteoarthritis
     Dosage: UNK
     Route: 065

REACTIONS (9)
  - Non-infectious endophthalmitis [Recovering/Resolving]
  - Hypopyon [Recovered/Resolved]
  - Blindness [Recovering/Resolving]
  - Vitreous haze [Recovering/Resolving]
  - Vitreous opacities [Unknown]
  - Eye pain [Unknown]
  - Retinal oedema [Recovered/Resolved]
  - Cataract [Unknown]
  - Visual acuity reduced [Recovering/Resolving]

NARRATIVE: CASE EVENT DATE: 20220415
